FAERS Safety Report 21268803 (Version 2)
Quarter: 2022Q3

REPORT INFORMATION
  Report Type: Spontaneous
  Country: US (occurrence: US)
  Receive Date: 20220830
  Receipt Date: 20220905
  Transmission Date: 20221026
  Serious: Yes (Other)
  Sender: FDA-Public Use
  Company Number: US-SUN PHARMACEUTICAL INDUSTRIES LTD-2022R1-352350

PATIENT
  Age: 77 Year
  Sex: Male

DRUGS (2)
  1. AZELASTINE [Suspect]
     Active Substance: AZELASTINE
     Indication: Sinusitis
     Dosage: 136 MICROGRAM, BID
     Route: 065
  2. AZELASTINE [Suspect]
     Active Substance: AZELASTINE
     Dosage: 137 MICROGRAM
     Route: 065
     Dates: start: 20220624, end: 20220724

REACTIONS (6)
  - Haemorrhage [Unknown]
  - Device issue [Unknown]
  - Thrombosis [Unknown]
  - Injury [Unknown]
  - Insomnia [Unknown]
  - Illness [Unknown]

NARRATIVE: CASE EVENT DATE: 20220724
